FAERS Safety Report 9803239 (Version 1)
Quarter: 2014Q1

REPORT INFORMATION
  Report Type: Report from Study
  Country: US (occurrence: US)
  Receive Date: 20140108
  Receipt Date: 20140108
  Transmission Date: 20141002
  Serious: Yes (Other)
  Sender: FDA-Public Use
  Company Number: PHEH2014US000492

PATIENT
  Age: 82 Year
  Sex: Female

DRUGS (2)
  1. EXELON PATCH [Suspect]
     Indication: DEMENTIA ALZHEIMER^S TYPE
     Dosage: 9.5 MG, DAILY
     Route: 062
     Dates: start: 20110715
  2. EXELON PATCH [Suspect]
     Dosage: UNK

REACTIONS (3)
  - General physical health deterioration [Not Recovered/Not Resolved]
  - Amnesia [Not Recovered/Not Resolved]
  - Skin disorder [Not Recovered/Not Resolved]
